FAERS Safety Report 12118655 (Version 3)
Quarter: 2016Q1

REPORT INFORMATION
  Report Type: Spontaneous
  Country: US (occurrence: US)
  Receive Date: 20160226
  Receipt Date: 20160303
  Transmission Date: 20160526
  Serious: Yes (Death)
  Sender: FDA-Public Use
  Company Number: US-009507513-1602USA010856

PATIENT

DRUGS (6)
  1. HEPARIN [Suspect]
     Active Substance: HEPARIN SODIUM
     Indication: THROMBOSIS IN DEVICE
  2. BIVALIRUDIN. [Suspect]
     Active Substance: BIVALIRUDIN
     Indication: CARDIAC VENTRICULAR THROMBOSIS
  3. BIVALIRUDIN. [Suspect]
     Active Substance: BIVALIRUDIN
     Indication: THROMBOSIS IN DEVICE
  4. INTEGRILIN [Suspect]
     Active Substance: EPTIFIBATIDE
     Indication: CARDIAC VENTRICULAR THROMBOSIS
  5. HEPARIN [Suspect]
     Active Substance: HEPARIN SODIUM
     Indication: CARDIAC VENTRICULAR THROMBOSIS
  6. INTEGRILIN [Suspect]
     Active Substance: EPTIFIBATIDE
     Indication: THROMBOSIS IN DEVICE

REACTIONS (2)
  - Haemorrhage [Fatal]
  - Haemorrhage intracranial [Fatal]
